FAERS Safety Report 25002243 (Version 2)
Quarter: 2025Q1

REPORT INFORMATION
  Report Type: Report from Study
  Country: UA (occurrence: UA)
  Receive Date: 20250224
  Receipt Date: 20250306
  Transmission Date: 20250409
  Serious: Yes (Other)
  Sender: SANOFI AVENTIS
  Company Number: UA-SA-2025SA053519

PATIENT
  Age: 72 Year
  Sex: Female

DRUGS (9)
  1. INSULIN GLARGINE\LIXISENATIDE [Suspect]
     Active Substance: INSULIN GLARGINE\LIXISENATIDE
     Indication: Type 2 diabetes mellitus
     Dosage: 33 IU, QD
     Route: 065
     Dates: start: 20250130, end: 20250130
  2. INSULIN GLARGINE\LIXISENATIDE [Suspect]
     Active Substance: INSULIN GLARGINE\LIXISENATIDE
     Dosage: 34 IU, QD
     Route: 065
     Dates: start: 20250131, end: 20250201
  3. INSULIN GLARGINE\LIXISENATIDE [Suspect]
     Active Substance: INSULIN GLARGINE\LIXISENATIDE
     Dosage: 36 IU, QD
     Route: 065
     Dates: start: 20250202, end: 20250202
  4. FARMASULIN H [Concomitant]
     Route: 065
     Dates: start: 2016
  5. FARMASULIN H [Concomitant]
     Route: 065
     Dates: start: 20250203
  6. Ask teva [Concomitant]
  7. Cosart [Concomitant]
  8. Ozalex [Concomitant]
     Indication: Blood cholesterol increased
  9. CARVEDILOL [Concomitant]
     Active Substance: CARVEDILOL

REACTIONS (4)
  - Angina pectoris [Recovered/Resolved]
  - Hyperglycaemia [Not Recovered/Not Resolved]
  - Nausea [Recovered/Resolved]
  - Abdominal pain upper [Recovered/Resolved]

NARRATIVE: CASE EVENT DATE: 20250131
